FAERS Safety Report 19481218 (Version 1)
Quarter: 2021Q2

REPORT INFORMATION
  Report Type: Spontaneous
  Country: US (occurrence: US)
  Receive Date: 20210630
  Receipt Date: 20210630
  Transmission Date: 20210717
  Serious: Yes (Disabling)
  Sender: FDA-Public Use
  Company Number: None

PATIENT
  Age: 73 Year
  Sex: Male
  Weight: 79.38 kg

DRUGS (5)
  1. LABETALOL [Concomitant]
     Active Substance: LABETALOL\LABETALOL HYDROCHLORIDE
  2. LASARTAN [Concomitant]
  3. METFORMIN HYDROCHLORIDE. [Suspect]
     Active Substance: METFORMIN HYDROCHLORIDE
     Indication: BLOOD GLUCOSE INCREASED
     Dosage: ?          QUANTITY:1 DF DOSAGE FORM;OTHER FREQUENCY:1 AM 1 PM;?
     Route: 048
     Dates: start: 20210529, end: 20210610
  4. CENTRUM MULTIBLE VITAMINS [Concomitant]
  5. SR MULTI VITIAM [Concomitant]

REACTIONS (8)
  - Headache [None]
  - Abdominal discomfort [None]
  - Asthenia [None]
  - Swelling of eyelid [None]
  - Diarrhoea [None]
  - Swelling [None]
  - Peripheral swelling [None]
  - Fatigue [None]
